FAERS Safety Report 10174878 (Version 2)
Quarter: 2014Q3

REPORT INFORMATION
  Report Type: Spontaneous
  Country: IT (occurrence: IT)
  Receive Date: 20140515
  Receipt Date: 20140730
  Transmission Date: 20150326
  Serious: Yes (Hospitalization)
  Sender: FDA-Public Use
  Company Number: IT-BAYER-2014-068328

PATIENT
  Age: 85 Year
  Sex: Male
  Weight: 69 kg

DRUGS (4)
  1. TAREG [Concomitant]
     Active Substance: VALSARTAN
     Dosage: DAILY DOSE 1 DF
     Route: 048
  2. CARDIOASPIRIN [Suspect]
     Active Substance: ASPIRIN
     Indication: PROPHYLAXIS
     Dosage: DAILY DOSE 1 DF
     Route: 048
     Dates: start: 20100101, end: 20140311
  3. TERAPROST [Concomitant]
     Dosage: DAILY DOSE 1 MG
     Route: 048
  4. PANTOPRAZOLE [Concomitant]
     Active Substance: PANTOPRAZOLE SODIUM
     Dosage: DAILY DOSE 20 MG
     Route: 048

REACTIONS (2)
  - Subdural haematoma [Recovering/Resolving]
  - Psychomotor hyperactivity [Recovering/Resolving]

NARRATIVE: CASE EVENT DATE: 20140311
